FAERS Safety Report 5646125-4 (Version None)
Quarter: 2008Q1

REPORT INFORMATION
  Report Type: 
  Country: None (occurrence: None)
  Receive Date: 20080227
  Receipt Date: 20080215
  Transmission Date: 20080703
  Serious: Yes (Hospitalization)
  Sender: FDA-Public Use
  Company Number: B0509485A

PATIENT
  Age: 35 Year
  Sex: Female
  Weight: 63.8665 kg

DRUGS (1)
  1. PAXIL [Suspect]
     Indication: ANXIETY
     Dosage: ORAL
     Route: 048
     Dates: start: 20071101, end: 20071218

REACTIONS (3)
  - COLITIS ISCHAEMIC [None]
  - HYPOTENSION [None]
  - RECTAL HAEMORRHAGE [None]
